FAERS Safety Report 5056462-2 (Version None)
Quarter: 2006Q3

REPORT INFORMATION
  Report Type: 
  Country: None (occurrence: None)
  Receive Date: 20060720
  Receipt Date: 20060714
  Transmission Date: 20061208
  Serious: Yes (Death, Hospitalization)
  Sender: FDA-Public Use
  Company Number: US-JNJFOC-20060702886

PATIENT
  Age: 95 Year
  Sex: Female

DRUGS (2)
  1. LEVAQUIN [Suspect]
     Indication: SEPSIS
  2. LEVAQUIN [Suspect]
     Indication: PNEUMONIA

REACTIONS (1)
  - DEATH [None]
